FAERS Safety Report 8772090 (Version 2)
Quarter: 2012Q4

REPORT INFORMATION
  Report Type: 
  Country: US (occurrence: US)
  Receive Date: 20120906
  Receipt Date: 20121026
  Transmission Date: 20130627
  Serious: Yes (Hospitalization)
  Sender: FDA-Public Use
  Company Number: US-SHIRE-ALL1-2012-04118

PATIENT
  Sex: Female
  Weight: 52.61 kg

DRUGS (2)
  1. PENTASA [Suspect]
     Indication: COLITIS ULCERATIVE
     Dosage: 1000 mg (two 500 mg capsules), 4x/day:qid
     Route: 048
     Dates: start: 201202, end: 201206
  2. IRON [Concomitant]
     Indication: SUPPLEMENTATION THERAPY
     Dosage: 1 DF, Unknown
     Route: 048

REACTIONS (5)
  - Dehydration [Not Recovered/Not Resolved]
  - Abdominal pain [Not Recovered/Not Resolved]
  - Nausea [Not Recovered/Not Resolved]
  - Vomiting [Not Recovered/Not Resolved]
  - Drug ineffective [Recovered/Resolved]
